FAERS Safety Report 4736284-X (Version None)
Quarter: 2005Q3

REPORT INFORMATION
  Report Type: 
  Country: None (occurrence: None)
  Receive Date: 20050804
  Receipt Date: 20050725
  Transmission Date: 20060218
  Serious: Yes (Hospitalization, Other)
  Sender: FDA-Public Use
  Company Number: 2005106622

PATIENT
  Age: 89 Year
  Sex: Female
  Weight: 74.8435 kg

DRUGS (14)
  1. CELEBREX [Suspect]
     Indication: ARTHRITIS
     Dosage: 200 MG (200 MG, 1 IN 1 D), ORAL
     Route: 048
  2. CELEBREX [Suspect]
     Indication: OSTEOPOROSIS
     Dosage: 200 MG (200 MG, 1 IN 1 D), ORAL
     Route: 048
  3. CELEBREX [Suspect]
     Indication: SPINAL FRACTURE
     Dosage: 200 MG (200 MG, 1 IN 1 D), ORAL
     Route: 048
  4. ASPIRIN [Concomitant]
  5. ZOCOR [Concomitant]
  6. FUROSEMIDE [Concomitant]
  7. AMIODARONE [Concomitant]
  8. ISOSORBIDE [Concomitant]
  9. SYNTHROID [Concomitant]
  10. PLAVIX [Concomitant]
  11. DETROL [Concomitant]
  12. DIOVAN ^CIBA-GEIGY^ (VALSARTAN) [Concomitant]
  13. VITAMINS [Concomitant]
  14. CALCIUM GLUCONATE [Concomitant]

REACTIONS (2)
  - CARDIAC FAILURE [None]
  - CORONARY ARTERIAL STENT INSERTION [None]
